FAERS Safety Report 8144305-X (Version None)
Quarter: 2012Q1

REPORT INFORMATION
  Report Type: 
  Country: None (occurrence: None)
  Receive Date: 20120214
  Receipt Date: 20120202
  Transmission Date: 20120608
  Serious: Yes (Other)
  Sender: FDA-Public Use
  Company Number: TPA2012A00634

PATIENT
  Age: 58 Year
  Sex: Male
  Weight: 97.5234 kg

DRUGS (3)
  1. SOTALOL HCL [Concomitant]
  2. ULORIC [Suspect]
     Indication: BLOOD URIC ACID INCREASED
     Dosage: 40 MG
     Dates: start: 20111229
  3. ASPIRIN [Concomitant]

REACTIONS (10)
  - NECK PAIN [None]
  - FATIGUE [None]
  - FACIAL PAIN [None]
  - HYPOAESTHESIA [None]
  - BLOOD PRESSURE INCREASED [None]
  - ASTHENIA [None]
  - DIZZINESS [None]
  - HEADACHE [None]
  - VERTIGO [None]
  - ARRHYTHMIA [None]
